FAERS Safety Report 4642900-3 (Version None)
Quarter: 2005Q2

REPORT INFORMATION
  Report Type: 
  Country: None (occurrence: None)
  Receive Date: 20050421
  Receipt Date: 20050413
  Transmission Date: 20051028
  Serious: Yes (Hospitalization)
  Sender: FDA-Public Use
  Company Number: 6014287

PATIENT
  Age: 46 Year
  Sex: Male

DRUGS (1)
  1. BISOPROLOL SANDOZ(TABLET) (BISOPROLOL FUMARATE) [Suspect]
     Dosage: 5,00 MG (5 MG, 1 IN 1 D), ORAL
     Route: 048
     Dates: start: 20050228

REACTIONS (2)
  - ARTHRALGIA [None]
  - ERYTHEMA NODOSUM [None]
